FAERS Safety Report 6249331-3 (Version None)
Quarter: 2009Q2

REPORT INFORMATION
  Report Type: 
  Country: None (occurrence: None)
  Receive Date: 20090629
  Receipt Date: 20090619
  Transmission Date: 20091009
  Serious: Yes (Hospitalization)
  Sender: FDA-Public Use
  Company Number: FR-MERCK-0906FRA00091M

PATIENT
  Sex: Female

DRUGS (4)
  1. COSOPT [Suspect]
     Indication: GLAUCOMA
     Route: 047
     Dates: start: 20080101, end: 20080201
  2. TIMOLOL MALEATE [Concomitant]
     Indication: GLAUCOMA
     Route: 047
     Dates: start: 20080101, end: 20080201
  3. BIMATOPROST [Suspect]
     Indication: GLAUCOMA
     Route: 047
     Dates: start: 20080101, end: 20080201
  4. CARTEOLOL HYDROCHLORIDE [Suspect]
     Indication: GLAUCOMA
     Route: 047
     Dates: start: 20080201, end: 20080503

REACTIONS (1)
  - PRE-ECLAMPSIA [None]
